FAERS Safety Report 7131974-6 (Version None)
Quarter: 2010Q4

REPORT INFORMATION
  Report Type: 
  Country: None (occurrence: None)
  Receive Date: 20101124
  Receipt Date: 20101124
  Transmission Date: 20110411
  Serious: Yes (Hospitalization)
  Sender: FDA-Public Use
  Company Number: None

PATIENT
  Age: 25 Year
  Sex: Female

DRUGS (1)
  1. LAMIVUDINE + ZIDOVUDINE [Suspect]
     Indication: HIV INFECTION

REACTIONS (1)
  - LACTIC ACIDOSIS [None]
